FAERS Safety Report 11364509 (Version 1)
Quarter: 2015Q3

REPORT INFORMATION
  Report Type: Spontaneous
  Country: US (occurrence: None)
  Receive Date: 20150810
  Receipt Date: 20150810
  Transmission Date: 20151125
  Serious: Yes (Other)
  Sender: FDA-Public Use
  Company Number: None

PATIENT
  Age: 26 Year
  Sex: Female
  Weight: 167.83 kg

DRUGS (6)
  1. IRON SUPPLEMENTS [Concomitant]
     Active Substance: IRON
  2. SYMBICORT [Suspect]
     Active Substance: BUDESONIDE\FORMOTEROL FUMARATE DIHYDRATE
     Indication: ASTHMA
     Dosage: 2 PUFFS
     Route: 055
  3. ALBUTEROL (INHALER AND NEBULIZER) [Concomitant]
  4. ADVAIR HFA [Concomitant]
     Active Substance: FLUTICASONE PROPIONATE\SALMETEROL XINAFOATE
  5. CENTRUM GUMMY VITAMINS [Concomitant]
  6. ZYRTEC [Concomitant]
     Active Substance: CETIRIZINE HYDROCHLORIDE

REACTIONS (3)
  - Suicidal ideation [None]
  - Chest pain [None]
  - Depression [None]

NARRATIVE: CASE EVENT DATE: 20150805
